FAERS Safety Report 5685330-8 (Version None)
Quarter: 2008Q1

REPORT INFORMATION
  Report Type: 
  Country: None (occurrence: None)
  Receive Date: 20080328
  Receipt Date: 20080317
  Transmission Date: 20080703
  Serious: Yes (Other)
  Sender: FDA-Public Use
  Company Number: US-PFIZER INC-2008024624

PATIENT
  Sex: Female
  Weight: 63.5 kg

DRUGS (10)
  1. CHANTIX [Suspect]
     Indication: SMOKING CESSATION THERAPY
  2. THEOPHYLLINE [Concomitant]
  3. INSULIN [Concomitant]
     Indication: DIABETES MELLITUS
  4. TRAZODONE HCL [Concomitant]
  5. ALL OTHER THERAPEUTIC PRODUCTS [Concomitant]
     Indication: ASTHMA
  6. ANALGESICS [Concomitant]
     Indication: PAIN
  7. MUSCLE RELAXANTS [Concomitant]
  8. ALL OTHER THERAPEUTIC PRODUCTS [Concomitant]
     Indication: ANXIETY
  9. FLONASE [Concomitant]
  10. OTHER HYPNOTICS AND SEDATIVES [Concomitant]
     Indication: SLEEP DISORDER

REACTIONS (1)
  - BLOOD GLUCOSE INCREASED [None]
